FAERS Safety Report 6620665-3 (Version None)
Quarter: 2010Q1

REPORT INFORMATION
  Report Type: 
  Country: None (occurrence: None)
  Receive Date: 20100309
  Receipt Date: 20090821
  Transmission Date: 20100710
  Serious: Yes (Other)
  Sender: FDA-Public Use
  Company Number: US-BIOGENIDEC-167643

PATIENT
  Age: 55 Year
  Sex: Female
  Weight: 81 kg

DRUGS (3)
  1. AVONEX [Suspect]
     Indication: MULTIPLE SCLEROSIS
     Route: 030
     Dates: start: 20020703, end: 20021126
  2. ZANAFLEX [Concomitant]
     Indication: MULTIPLE SCLEROSIS
     Dates: start: 20021101, end: 20021126
  3. COPAXONE [Concomitant]

REACTIONS (5)
  - BLOOD PRESSURE INCREASED [None]
  - HEPATITIS [None]
  - MULTIPLE SCLEROSIS RELAPSE [None]
  - VIRAL INFECTION [None]
  - WEIGHT DECREASED [None]
